FAERS Safety Report 10541580 (Version 2)
Quarter: 2017Q4

REPORT INFORMATION
  Report Type: Spontaneous
  Country: US (occurrence: US)
  Receive Date: 20141024
  Receipt Date: 20171109
  Transmission Date: 20180320
  Serious: No
  Sender: FDA-Public Use
  Company Number: US-ALLERGAN-1316067US

PATIENT
  Age: 78 Year
  Sex: Female

DRUGS (2)
  1. ALPHAGAN P [Suspect]
     Active Substance: BRIMONIDINE TARTRATE
     Indication: GLAUCOMA
     Dosage: 2 GTT, TID
     Route: 047
     Dates: start: 2012
  2. AZOPT [Suspect]
     Active Substance: BRINZOLAMIDE
     Indication: GLAUCOMA
     Dosage: 2 GTT, BID
     Route: 047
     Dates: start: 201203, end: 201309

REACTIONS (9)
  - Scab [Unknown]
  - Eyelid irritation [Recovered/Resolved]
  - Eyelid disorder [Unknown]
  - Drug ineffective [Unknown]
  - Eyelids pruritus [Unknown]
  - Dermatitis [Unknown]
  - Chest pain [Recovered/Resolved]
  - Peripheral swelling [Unknown]
  - Ocular hyperaemia [Unknown]

NARRATIVE: CASE EVENT DATE: 2012
